FAERS Safety Report 6594001-5 (Version None)
Quarter: 2010Q1

REPORT INFORMATION
  Report Type: 
  Country: None (occurrence: None)
  Receive Date: 20100212
  Receipt Date: 20100127
  Transmission Date: 20100710
  Serious: Yes (Life-Threatening, Hospitalization)
  Sender: FDA-Public Use
  Company Number: DSA_33416_2009

PATIENT
  Age: 85 Year
  Sex: Female

DRUGS (14)
  1. ENALAPRIL MALEATE [Suspect]
     Indication: CARDIAC FAILURE
     Dosage: (2.5 MG BID ORAL), (2.5 MG QD ORAL)
     Route: 048
     Dates: start: 20081107, end: 20081214
  2. ENALAPRIL MALEATE [Suspect]
     Indication: CARDIAC FAILURE
     Dosage: (2.5 MG BID ORAL), (2.5 MG QD ORAL)
     Route: 048
     Dates: end: 20091106
  3. NOVOMIX 30 /02607201/ (NOVOMIX - INSULIN ASPART, BIPHASIC ISOPHANE [IN [Suspect]
     Indication: TYPE 2 DIABETES MELLITUS
     Dosage: (26-12-16 IU SUBCUTANEOUS)
     Route: 058
     Dates: start: 20000101, end: 20081214
  4. REPAGLINIDE (NOVO-NORM - REPAGLINIDE) [Suspect]
     Indication: TYPE 2 DIABETES MELLITUS
     Dosage: (2 MG TID ORAL)
     Route: 048
     Dates: start: 20000101, end: 20081214
  5. CARVEDILOL [Suspect]
     Indication: CARDIAC FAILURE
     Dosage: (6.25 MG  BID ORAL), (6.25 MG QD ORAL)
     Route: 048
     Dates: end: 20081106
  6. CARVEDILOL [Suspect]
     Indication: CARDIAC FAILURE
     Dosage: (6.25 MG  BID ORAL), (6.25 MG QD ORAL)
     Route: 048
     Dates: start: 20081107, end: 20081214
  7. CARVEDILOL [Suspect]
     Indication: CARDIAC FAILURE
     Dosage: (6.25 MG  BID ORAL), (6.25 MG QD ORAL)
     Route: 048
     Dates: end: 20091106
  8. LANTUS [Suspect]
     Dosage: (16 IU QD   SUBCUTANEOUS)
     Route: 058
     Dates: start: 20000101
  9. ALLOPURINOL [Concomitant]
  10. DIGITOXIN INJ [Concomitant]
  11. L-THYROXIN [Concomitant]
  12. OMEPRAZOLE [Concomitant]
  13. SPIRONOLACTONE [Concomitant]
  14. TORSEMIDE [Concomitant]

REACTIONS (4)
  - DEPRESSED LEVEL OF CONSCIOUSNESS [None]
  - DRUG INTERACTION [None]
  - FALL [None]
  - HYPOGLYCAEMIA [None]
